FAERS Safety Report 15469643 (Version 2)
Quarter: 2018Q4

REPORT INFORMATION
  Report Type: Spontaneous
  Country: US (occurrence: US)
  Receive Date: 20181005
  Receipt Date: 20181127
  Transmission Date: 20190205
  Serious: No
  Sender: FDA-Public Use
  Company Number: US-SA-2018SA274583

PATIENT
  Age: 62 Year
  Sex: Female
  Weight: 66.21 kg

DRUGS (12)
  1. NORMAL SALINE [Concomitant]
     Active Substance: SODIUM CHLORIDE
     Indication: FLUSHING
     Dosage: 0.9 %, UNK
     Route: 042
     Dates: start: 20180807
  2. LMX [LIDOCAINE] [Concomitant]
     Indication: PREMEDICATION
  3. VITAMIN D [ERGOCALCIFEROL] [Concomitant]
     Dosage: 1 DF, QD
     Route: 048
  4. MULTIVITAMINS [VITAMINS NOS] [Concomitant]
     Active Substance: VITAMINS
     Dosage: 1 DF, QD
     Route: 048
     Dates: start: 20160810
  5. CALCIUM [Concomitant]
     Active Substance: CALCIUM
     Dosage: 1 DF, QD
     Route: 048
     Dates: start: 20160810
  6. EPINEPHRINE. [Concomitant]
     Active Substance: EPINEPHRINE
     Indication: ANAPHYLACTIC REACTION
     Dosage: 0.3 MG, UNK
     Route: 030
     Dates: start: 20180807
  7. NEXIUM [ESOMEPRAZOLE SODIUM] [Concomitant]
     Dosage: 1 DF, QD
     Route: 048
     Dates: start: 20160810
  8. SODIUM CHLORIDE. [Concomitant]
     Active Substance: SODIUM CHLORIDE
     Indication: FLUSHING
     Dosage: 0.9 %, UNK
     Route: 042
     Dates: start: 20180807
  9. LOSARTAN/HCTZ [Concomitant]
     Active Substance: HYDROCHLOROTHIAZIDE\LOSARTAN
     Dosage: 1 DF, QD
     Route: 048
     Dates: start: 20170928
  10. METOPROLOL. [Concomitant]
     Active Substance: METOPROLOL
     Dosage: 1 DF, QD
     Route: 048
     Dates: start: 20160810
  11. CEREZYME [Suspect]
     Active Substance: IMIGLUCERASE
     Indication: LIPID METABOLISM DISORDER
     Dosage: 4000 U, QOW
     Route: 041
  12. STERILE WATER [Concomitant]
     Active Substance: WATER
     Dosage: 1 DF, UNK
     Route: 042
     Dates: start: 20180807

REACTIONS (1)
  - Laryngitis [Unknown]
